FAERS Safety Report 4308450-9 (Version None)
Quarter: 2004Q1

REPORT INFORMATION
  Report Type: 
  Country: None (occurrence: None)
  Receive Date: 20040301
  Receipt Date: 20031210
  Transmission Date: 20041129
  Serious: Yes (Hospitalization)
  Sender: FDA-Public Use
  Company Number: DE-ROCHE-354025

PATIENT
  Age: 53 Year
  Sex: Male

DRUGS (3)
  1. PEG-INTERFERON ALFA 2A (RO 25-8310) [Suspect]
     Dosage: TAKEN WEEKLY
     Route: 058
     Dates: start: 20030514
  2. COPEGUS [Suspect]
     Route: 048
     Dates: start: 20030514
  3. ANTIHEMOPHILIC FACTOR (HUMAN) [Concomitant]
     Dosage: DRUG: BAXTERVREKOMBINAT.
     Route: 042
     Dates: start: 19500615

REACTIONS (3)
  - ANAL FISTULA [None]
  - FISTULA [None]
  - METABOLIC DISORDER [None]
